FAERS Safety Report 8758690 (Version 1)
Quarter: 2012Q4

REPORT INFORMATION
  Report Type: Spontaneous
  Country: US (occurrence: None)
  Receive Date: 20120828
  Receipt Date: 20120828
  Transmission Date: 20130627
  Serious: Yes (Hospitalization)
  Sender: FDA-Public Use
  Company Number: None

PATIENT
  Age: 79 Year
  Sex: Male

DRUGS (1)
  1. REVATIO [Suspect]
     Dosage: 20 mg TID Oral
     Route: 048
     Dates: start: 20111212

REACTIONS (1)
  - Hyperkalaemia [None]
